FAERS Safety Report 9260514 (Version 1)
Quarter: 2013Q2

REPORT INFORMATION
  Report Type: Report from Study
  Country: JP (occurrence: JP)
  Receive Date: 20130429
  Receipt Date: 20130429
  Transmission Date: 20140414
  Serious: Yes (Hospitalization)
  Sender: FDA-Public Use
  Company Number: JP-VERTEX PHARMACEUTICALS INC-AE-2012-010602

PATIENT
  Age: 70 Year
  Sex: Male

DRUGS (14)
  1. VX-950 (TELAPREVIR) [Suspect]
     Indication: CHRONIC HEPATITIS C
     Dosage: 2250 MG, QD
     Route: 048
     Dates: start: 20120510, end: 20120523
  2. VX-950 (TELAPREVIR) [Suspect]
     Dosage: 1500 MG, QD
     Route: 048
     Dates: start: 20120524, end: 20120527
  3. VX-950 (TELAPREVIR) [Suspect]
     Dosage: 750 MG, QD
     Route: 048
     Dates: start: 20120528
  4. RIBAVIRIN [Suspect]
     Indication: CHRONIC HEPATITIS C
     Dosage: 600 MG, QD
     Route: 048
     Dates: start: 20120510, end: 20120523
  5. RIBAVIRIN [Suspect]
     Dosage: 200 MG, QD
     Route: 048
     Dates: start: 20120524
  6. PEGINTERFERON ALFA-2B [Suspect]
     Indication: CHRONIC HEPATITIS C
     Dosage: 1.5 ?G/KG, QW
     Route: 058
     Dates: start: 20120510, end: 20120530
  7. PEGINTERFERON ALFA-2B [Suspect]
     Dosage: 0.9 ?G/KG, QW
     Route: 058
     Dates: start: 20120531
  8. LOXONIN [Concomitant]
     Dosage: UNK, PRN
     Route: 048
  9. FERROMIA [Concomitant]
     Dosage: 100 MG, QD
     Route: 048
     Dates: start: 20120508, end: 20120524
  10. FERROMIA [Concomitant]
     Dosage: 50 MG, QD
     Route: 048
  11. DIOVAN [Concomitant]
     Dosage: 40 MG, QD
     Route: 048
  12. FEBURIC [Concomitant]
     Dosage: 20 MG, QD
     Route: 048
     Dates: start: 20120510, end: 20120802
  13. EPADEL-S [Concomitant]
     Dosage: 2 DF, QD
     Route: 048
     Dates: start: 20120510
  14. AMOBAN [Concomitant]
     Dosage: 7.5 MG, PRN
     Route: 048
     Dates: end: 20120704

REACTIONS (2)
  - Pyelonephritis [Recovered/Resolved]
  - Off label use [Unknown]
